FAERS Safety Report 22246065 (Version 1)
Quarter: 2023Q2

REPORT INFORMATION
  Report Type: Spontaneous
  Country: US (occurrence: None)
  Receive Date: 20230421
  Receipt Date: 20230421
  Transmission Date: 20230721
  Serious: Yes (Other)
  Sender: FDA-Public Use
  Company Number: None

PATIENT
  Age: 56 Year
  Sex: Female
  Weight: 72 kg

DRUGS (1)
  1. REMODULIN [Suspect]
     Active Substance: TREPROSTINIL
     Dosage: OTHER FREQUENCY : INFUSION;?
     Route: 041
     Dates: start: 20230419, end: 20230419

REACTIONS (5)
  - Tachycardia [None]
  - Dyspnoea [None]
  - Nasal congestion [None]
  - Nausea [None]
  - Feeling hot [None]

NARRATIVE: CASE EVENT DATE: 20230419
